FAERS Safety Report 7654547-5 (Version None)
Quarter: 2011Q3

REPORT INFORMATION
  Report Type: 
  Country: None (occurrence: None)
  Receive Date: 20110803
  Receipt Date: 20110728
  Transmission Date: 20111222
  Serious: Yes (Other)
  Sender: FDA-Public Use
  Company Number: GB-MERCK-1108GBR00005

PATIENT
  Age: 82 Year
  Sex: Female
  Weight: 64 kg

DRUGS (6)
  1. ACETAMINOPHEN AND CODEINE PHOSPHATE [Concomitant]
     Route: 065
     Dates: start: 20110405, end: 20110503
  2. HYALURONATE SODIUM [Concomitant]
     Route: 065
     Dates: start: 20110505, end: 20110602
  3. CALCIUM CARBONATE AND CHOLECALCIFEROL [Concomitant]
     Route: 065
     Dates: start: 20110518, end: 20110617
  4. LANSOPRAZOLE [Concomitant]
     Route: 065
     Dates: start: 20110405, end: 20110503
  5. FOSAMAX [Suspect]
     Route: 048
     Dates: start: 20110518, end: 20110718
  6. AMOXICILLIN AND CLAVULANATE POTASSIUM [Concomitant]
     Route: 065
     Dates: start: 20110405, end: 20110503

REACTIONS (3)
  - JOINT SWELLING [None]
  - PAIN [None]
  - ABDOMINAL DISTENSION [None]
